FAERS Safety Report 6832134-6 (Version None)
Quarter: 2010Q3

REPORT INFORMATION
  Report Type: 
  Country: None (occurrence: None)
  Receive Date: 20100706
  Receipt Date: 20100620
  Transmission Date: 20110219
  Serious: Yes (Hospitalization)
  Sender: FDA-Public Use
  Company Number: URSO-2010-064

PATIENT
  Age: 74 Year
  Sex: Male

DRUGS (5)
  1. URSODIOL [Suspect]
     Dosage: 300 MG, ORAL
     Route: 048
  2. DEPAS (ETIZOLAM) [Suspect]
     Dosage: ORAL
     Route: 048
  3. PABRON (BROMHEXINE HYDROCHLORIDE ETC) [Suspect]
  4. BEZATOL SR (BEZAFIBRATE) [Concomitant]
  5. FAMOTIDINE [Concomitant]

REACTIONS (11)
  - ALANINE AMINOTRANSFERASE INCREASED [None]
  - ASPARTATE AMINOTRANSFERASE INCREASED [None]
  - BLOOD CREATINE PHOSPHOKINASE INCREASED [None]
  - CARDIAC FAILURE [None]
  - CHROMATURIA [None]
  - COMA [None]
  - CONVULSION [None]
  - HAEMODIALYSIS [None]
  - MYOGLOBIN BLOOD INCREASED [None]
  - OVERDOSE [None]
  - PROTEINURIA [None]
